FAERS Safety Report 6202898-3 (Version None)
Quarter: 2009Q2

REPORT INFORMATION
  Report Type: 
  Country: None (occurrence: None)
  Receive Date: 20090526
  Receipt Date: 20090521
  Transmission Date: 20091009
  Serious: Yes (Other)
  Sender: FDA-Public Use
  Company Number: GB-ABBOTT-09P-167-0570966-00

PATIENT
  Sex: Female

DRUGS (3)
  1. HUMIRA [Suspect]
     Indication: RHEUMATOID ARTHRITIS
     Route: 058
     Dates: start: 20090428, end: 20090428
  2. UNKNOWN ORAL MEDICATION [Concomitant]
     Indication: DIABETES MELLITUS
  3. UNKNOWN STATINS [Concomitant]
     Indication: BLOOD CHOLESTEROL INCREASED

REACTIONS (4)
  - CHEST PAIN [None]
  - FLUSHING [None]
  - NIGHTMARE [None]
  - PALPITATIONS [None]
